FAERS Safety Report 8902377 (Version 1)
Quarter: 2012Q4

REPORT INFORMATION
  Report Type: 
  Country: US (occurrence: US)
  Receive Date: 20121112
  Receipt Date: 20121112
  Transmission Date: 20130627
  Serious: Yes (Other)
  Sender: FDA-Public Use
  Company Number: US-PFIZER INC-2012278658

PATIENT
  Age: 44 Year
  Sex: Female
  Weight: 81.63 kg

DRUGS (2)
  1. PREMARIN [Suspect]
     Indication: HORMONE REPLACEMENT THERAPY
     Dosage: 1.25 mg, daily
     Route: 048
     Dates: end: 201209
  2. CELEXA [Concomitant]
     Indication: DEPRESSION
     Dosage: 40 mg, daily

REACTIONS (1)
  - Ligament rupture [Recovered/Resolved]
